FAERS Safety Report 23501792 (Version 1)
Quarter: 2024Q1

REPORT INFORMATION
  Report Type: Spontaneous
  Country: US (occurrence: US)
  Receive Date: 20240208
  Receipt Date: 20240208
  Transmission Date: 20240410
  Serious: No
  Sender: FDA-Public Use
  Company Number: US-ANIPHARMA-2023-US-037198

PATIENT
  Sex: Female

DRUGS (12)
  1. CORTICOTROPIN [Suspect]
     Active Substance: CORTICOTROPIN
     Indication: Systemic lupus erythematosus
     Dosage: 40 UNITS THREE TIMES A WEEK
     Route: 058
  2. PREDNISONE [Concomitant]
     Active Substance: PREDNISONE
     Route: 065
  3. ZOLOFT [Concomitant]
     Active Substance: SERTRALINE HYDROCHLORIDE
     Route: 065
  4. GLUCOSAMINE SULFATE ADVANED [Concomitant]
     Route: 065
  5. MIDODRINE HYDROCHLORIDE [Concomitant]
     Active Substance: MIDODRINE HYDROCHLORIDE
     Route: 065
  6. LEVOCARNITINE [Concomitant]
     Active Substance: LEVOCARNITINE
     Route: 065
  7. PEPCID RPD [Concomitant]
     Active Substance: FAMOTIDINE
     Route: 065
  8. VITAMINS [Concomitant]
     Active Substance: VITAMINS
     Route: 065
  9. CALCIUM GLUCONATE [Concomitant]
     Active Substance: CALCIUM GLUCONATE
     Route: 065
  10. VITAMIN C [Concomitant]
     Active Substance: ASCORBIC ACID
     Route: 065
  11. D3 MAXIMUM STRENGTH [Concomitant]
     Route: 065
  12. KETOTIFEN HYDROGEN [Concomitant]
     Route: 065

REACTIONS (1)
  - Nausea [Unknown]
